FAERS Safety Report 10737260 (Version 3)
Quarter: 2015Q2

REPORT INFORMATION
  Report Type: Report from Study
  Country: DE (occurrence: DE)
  Receive Date: 20150126
  Receipt Date: 20150505
  Transmission Date: 20150821
  Serious: Yes (Hospitalization)
  Sender: FDA-Public Use
  Company Number: DE-ABBVIE-15K-062-1335491-00

PATIENT
  Age: 40 Year
  Sex: Female

DRUGS (1)
  1. HUMIRA [Suspect]
     Active Substance: ADALIMUMAB
     Indication: CROHN^S DISEASE
     Route: 058
     Dates: start: 2013, end: 20141230

REACTIONS (6)
  - Pulmonary sepsis [Unknown]
  - Central venous catheterisation [Not Recovered/Not Resolved]
  - Coma [Not Recovered/Not Resolved]
  - Cerebral infarction [Unknown]
  - Mobility decreased [Not Recovered/Not Resolved]
  - Enterostomy [Not Recovered/Not Resolved]

NARRATIVE: CASE EVENT DATE: 20141230
